FAERS Safety Report 7939857-6 (Version None)
Quarter: 2011Q4

REPORT INFORMATION
  Report Type: 
  Country: None (occurrence: None)
  Receive Date: 20111125
  Receipt Date: 20111116
  Transmission Date: 20120403
  Serious: Yes (Hospitalization)
  Sender: FDA-Public Use
  Company Number: US-BRISTOL-MYERS SQUIBB COMPANY-16162554

PATIENT
  Age: 51 Year
  Sex: Male
  Weight: 68 kg

DRUGS (13)
  1. METFORMIN [Concomitant]
     Route: 048
  2. OXYCODONE HCL [Concomitant]
     Dosage: EVERY 4HRS
     Route: 048
  3. CARBOPLATIN [Suspect]
     Indication: HEAD AND NECK CANCER
     Dosage: 1DF= 2AUC
     Dates: start: 20111101
  4. LISINOPRIL [Concomitant]
  5. DOXYCYCLINE [Concomitant]
     Route: 048
  6. FLOMAX [Concomitant]
     Dosage: 0.4MG PEG TUBE DAILY.
  7. DECADRON [Concomitant]
     Route: 048
  8. ERBITUX [Suspect]
     Indication: HEAD AND NECK CANCER
     Dosage: FROM 12AUG11, 400MG/M2 LOADING DOSE 19AUG-26AUG11, 19-25OCT11.,250MG/M2 WEEKS 2 AND 3 1NOV11
     Route: 042
     Dates: start: 20110812
  9. ISOSORBIDE DINITRATE [Concomitant]
     Dosage: 1DF=60ML/HR FOR 16HRS/DAY
  10. CISPLATIN [Suspect]
     Indication: HEAD AND NECK CANCER
     Dosage: ALSO ON 25OCT11 19OCT-25OCT2011
     Route: 042
     Dates: start: 20111019
  11. AMARYL [Concomitant]
     Route: 048
  12. ATIVAN [Concomitant]
     Dosage: ALSO 3PER DAY
     Route: 048
  13. NOVOLOG [Concomitant]
     Dosage: 1DF=2 UNITS BEFORE MEALS.
     Route: 058

REACTIONS (14)
  - HYPOTENSION [None]
  - RENAL FAILURE ACUTE [None]
  - HEARING IMPAIRED [None]
  - WEIGHT DECREASED [None]
  - HYPOXIA [None]
  - PRESYNCOPE [None]
  - HEADACHE [None]
  - DIZZINESS [None]
  - VOMITING [None]
  - DEHYDRATION [None]
  - DYSPNOEA [None]
  - NAUSEA [None]
  - DECREASED APPETITE [None]
  - HYPOGLYCAEMIA [None]
